FAERS Safety Report 19034295 (Version 1)
Quarter: 2021Q1

REPORT INFORMATION
  Report Type: Spontaneous
  Country: CN (occurrence: CN)
  Receive Date: 20210319
  Receipt Date: 20210319
  Transmission Date: 20210420
  Serious: Yes (Death, Other)
  Sender: FDA-Public Use
  Company Number: CN-GLAXOSMITHKLINE-CN2020APC241866

PATIENT

DRUGS (1)
  1. SERETIDE [Suspect]
     Active Substance: FLUTICASONE PROPIONATE\SALMETEROL XINAFOATE
     Indication: PRODUCT USED FOR UNKNOWN INDICATION
     Dosage: UNK, 50/250UG, 60 INHALATIONS
     Route: 055
     Dates: start: 202011

REACTIONS (4)
  - Underdose [Unknown]
  - Product complaint [Unknown]
  - Myocardial infarction [Fatal]
  - Cardiac disorder [Fatal]

NARRATIVE: CASE EVENT DATE: 202011
